FAERS Safety Report 11321359 (Version 2)
Quarter: 2015Q3

REPORT INFORMATION
  Report Type: Spontaneous
  Country: GB (occurrence: GB)
  Receive Date: 20150729
  Receipt Date: 20150818
  Transmission Date: 20151125
  Serious: Yes (Other)
  Sender: FDA-Public Use
  Company Number: GB-ASTRAZENECA-2015SE71369

PATIENT
  Sex: Male

DRUGS (21)
  1. BYDUREON [Suspect]
     Active Substance: EXENATIDE
     Indication: DIABETES MELLITUS
     Route: 065
     Dates: start: 2013, end: 201507
  2. DIORALYTE [Concomitant]
     Active Substance: CITRIC ACID MONOHYDRATE\DEXTROSE\POTASSIUM CATION\SODIUM CHLORIDE
  3. METOCLOPRAMIDE. [Concomitant]
     Active Substance: METOCLOPRAMIDE
  4. CLOPIDOGREL [Concomitant]
     Active Substance: CLOPIDOGREL BISULFATE
  5. ISOSORBIDE MONONITRATE. [Concomitant]
     Active Substance: ISOSORBIDE MONONITRATE
  6. ORAMORPH [Concomitant]
     Active Substance: MORPHINE SULFATE
  7. FLIXONASE [Concomitant]
     Active Substance: FLUTICASONE PROPIONATE
  8. CO CODAMOL [Concomitant]
     Active Substance: ACETAMINOPHEN\CODEINE PHOSPHATE
  9. CALCIFEROL [Concomitant]
     Active Substance: ERGOCALCIFEROL
  10. IVABRADINE HYDROCHLORIDE [Concomitant]
     Active Substance: IVABRADINE HYDROCHLORIDE
  11. METFORMINE + GLIPIZIDE [Concomitant]
  12. CANDESARTAN [Concomitant]
     Active Substance: CANDESARTAN
  13. NIZATIDINE. [Concomitant]
     Active Substance: NIZATIDINE
  14. MOTILIUM [Concomitant]
     Active Substance: DOMPERIDONE
  15. LERCANIDIPINE [Concomitant]
     Active Substance: LERCANIDIPINE
  16. GLICLAZIDE [Concomitant]
     Active Substance: GLICLAZIDE
  17. ROSUVASTATIN [Concomitant]
     Active Substance: ROSUVASTATIN
  18. DIAZEPAM. [Concomitant]
     Active Substance: DIAZEPAM
  19. ASPIRIN. [Concomitant]
     Active Substance: ASPIRIN
     Indication: DEVICE OCCLUSION
  20. NEXIUM [Suspect]
     Active Substance: ESOMEPRAZOLE MAGNESIUM
     Route: 048
  21. DIHYDROCODEINE [Concomitant]
     Active Substance: DIHYDROCODEINE

REACTIONS (16)
  - Intentional product misuse [Unknown]
  - Myocardial infarction [Unknown]
  - Memory impairment [Unknown]
  - Drug dose omission [Unknown]
  - Nodule [Unknown]
  - Abdominal pain upper [Unknown]
  - Drug prescribing error [Unknown]
  - Chest pain [Unknown]
  - Product solubility abnormal [Unknown]
  - Aneurysm [Unknown]
  - Injection site pain [Unknown]
  - Anxiety [Unknown]
  - Renal cyst [Unknown]
  - Precancerous mucosal lesion [Unknown]
  - Insomnia [Unknown]
  - Malaise [Unknown]
